FAERS Safety Report 20300185 (Version 1)
Quarter: 2022Q1

REPORT INFORMATION
  Report Type: Report from Study
  Country: US (occurrence: US)
  Receive Date: 20220105
  Receipt Date: 20220105
  Transmission Date: 20220423
  Serious: Yes (Death, Other)
  Sender: FDA-Public Use
  Company Number: US-TAKEDA-2022TUS000506

PATIENT
  Age: 20 Year
  Sex: Male
  Weight: 41.723 kg

DRUGS (21)
  1. HUMAN IMMUNOGLOBULIN G [Suspect]
     Active Substance: HUMAN IMMUNOGLOBULIN G
     Indication: Chronic kidney disease
     Dosage: 12 GRAM, 1/WEEK
     Route: 058
     Dates: start: 20210825
  2. ACETAMINOPHEN [Concomitant]
     Active Substance: ACETAMINOPHEN
  3. DIPHENHYDRAMINE [Concomitant]
     Active Substance: DIPHENHYDRAMINE
  4. LIDOCAINE [Concomitant]
     Active Substance: LIDOCAINE
  5. EPINEPHRINE [Concomitant]
     Active Substance: EPINEPHRINE
  6. CALCITRIOL [Concomitant]
     Active Substance: CALCITRIOL
  7. LABETALOL [Concomitant]
     Active Substance: LABETALOL\LABETALOL HYDROCHLORIDE
  8. NIFEDIPINE [Concomitant]
     Active Substance: NIFEDIPINE
  9. DIAZEPAM [Concomitant]
     Active Substance: DIAZEPAM
  10. ENTOCORT [Concomitant]
     Active Substance: BUDESONIDE
  11. MINOXIDIL [Concomitant]
     Active Substance: MINOXIDIL
  12. AMOXICILLIN [Concomitant]
     Active Substance: AMOXICILLIN
  13. LISINOPRIL [Concomitant]
     Active Substance: LISINOPRIL
  14. AZITHROMYCIN [Concomitant]
     Active Substance: AZITHROMYCIN
  15. MAGOX [Concomitant]
  16. PREDNISOLONE [Concomitant]
     Active Substance: PREDNISOLONE
  17. HYDROCORTISONE [Concomitant]
     Active Substance: HYDROCORTISONE
  18. CLONIDINE [Concomitant]
     Active Substance: CLONIDINE
  19. OXCARBAZEPINE [Concomitant]
     Active Substance: OXCARBAZEPINE
  20. SPIRONOLACTONE [Concomitant]
     Active Substance: SPIRONOLACTONE
  21. CLONAZEPAM [Concomitant]
     Active Substance: CLONAZEPAM

REACTIONS (2)
  - Death [Fatal]
  - Off label use [Unknown]

NARRATIVE: CASE EVENT DATE: 20211101
